FAERS Safety Report 5020294-1 (Version None)
Quarter: 2006Q2

REPORT INFORMATION
  Report Type: 
  Country: None (occurrence: None)
  Receive Date: 20060602
  Receipt Date: 20060512
  Transmission Date: 20061013
  Serious: Yes (Hospitalization)
  Sender: FDA-Public Use
  Company Number: FR200602000101

PATIENT
  Age: 79 Year
  Sex: Female
  Weight: 54 kg

DRUGS (6)
  1. FORTEO [Suspect]
     Indication: OSTEOPOROSIS
     Dosage: 20 UG, DAILY, (1/D), SUBCUTANEOUS
     Route: 058
     Dates: start: 20051109
  2. FORTEO [Concomitant]
  3. COVERSYL (PERINDOPRIL) [Concomitant]
  4. SECTRAL [Concomitant]
  5. OROCAL D(30) (CALCIUM CARBONATE, COLECALCIFEROL0 [Concomitant]
  6. LORAZEPAM [Concomitant]

REACTIONS (4)
  - AORTIC STENOSIS [None]
  - CEREBRAL ISCHAEMIA [None]
  - CEREBROVASCULAR ACCIDENT [None]
  - HYPERCHOLESTEROLAEMIA [None]
